FAERS Safety Report 25054667 (Version 2)
Quarter: 2025Q1

REPORT INFORMATION
  Report Type: Report from Study
  Country: US (occurrence: US)
  Receive Date: 20250308
  Receipt Date: 20250311
  Transmission Date: 20250409
  Serious: Yes (Death)
  Sender: ROCHE
  Company Number: US-ROCHE-10000226858

PATIENT
  Age: 86 Year
  Sex: Female

DRUGS (5)
  1. ACTEMRA ACTPEN [Suspect]
     Active Substance: TOCILIZUMAB
     Indication: Giant cell arteritis
     Route: 058
  2. ACTEMRA ACTPEN [Suspect]
     Active Substance: TOCILIZUMAB
     Route: 058
  3. ACITRETIN [Concomitant]
     Active Substance: ACITRETIN
  4. NITROFURANTOIN [Concomitant]
     Active Substance: NITROFURANTOIN
  5. MOXIFLOXACIN [Concomitant]
     Active Substance: MOXIFLOXACIN

REACTIONS (1)
  - Aortic rupture [Fatal]
